FAERS Safety Report 5753565-1 (Version None)
Quarter: 2008Q2

REPORT INFORMATION
  Report Type: 
  Country: None (occurrence: None)
  Receive Date: 20080530
  Receipt Date: 20080521
  Transmission Date: 20081010
  Serious: Yes (Other)
  Sender: FDA-Public Use
  Company Number: US-BAYER-200811650BCC

PATIENT
  Sex: Female

DRUGS (3)
  1. ASPIRIN [Suspect]
     Indication: JUVENILE ARTHRITIS
     Dosage: TOTAL DAILY DOSE: 3900 MG  UNIT DOSE: 325 MG
     Route: 048
     Dates: start: 19810101, end: 19810101
  2. ASPIRIN [Suspect]
     Dosage: TOTAL DAILY DOSE: 2600 MG  UNIT DOSE: 325 MG
     Route: 048
     Dates: start: 19680101
  3. OXYCONTIN [Concomitant]

REACTIONS (5)
  - BRONCHIECTASIS [None]
  - DYSPNOEA [None]
  - PNEUMONIA BACTERIAL [None]
  - PNEUMONIA VIRAL [None]
  - TINNITUS [None]
